FAERS Safety Report 14968998 (Version 2)
Quarter: 2018Q3

REPORT INFORMATION
  Report Type: Spontaneous
  Country: US (occurrence: US)
  Receive Date: 20180604
  Receipt Date: 20180813
  Transmission Date: 20181010
  Serious: Yes (Other)
  Sender: FDA-Public Use
  Company Number: US-SA-2018SA003869

PATIENT
  Age: 36 Year
  Sex: Female
  Weight: 158.75 kg

DRUGS (7)
  1. WELLBUTRIN [Concomitant]
     Active Substance: BUPROPION HYDROCHLORIDE
     Indication: PRODUCT USED FOR UNKNOWN INDICATION
  2. SUMATRIPTAN. [Concomitant]
     Active Substance: SUMATRIPTAN
     Indication: PRODUCT USED FOR UNKNOWN INDICATION
  3. ABRAXANE [Concomitant]
     Active Substance: PACLITAXEL
  4. DOXIL [DOXYCYCLINE HYDROCHLORIDE] [Concomitant]
  5. NEOSAR [Concomitant]
     Active Substance: CYCLOPHOSPHAMIDE
     Indication: PRODUCT USED FOR UNKNOWN INDICATION
  6. TAXOTERE [Suspect]
     Active Substance: DOCETAXEL
     Indication: BREAST CANCER
     Dosage: 119 MG,Q3W
     Route: 042
     Dates: start: 20120119, end: 20120119
  7. TAXOTERE [Suspect]
     Active Substance: DOCETAXEL
     Dosage: 119 MG,Q3W
     Route: 042
     Dates: start: 20141106, end: 20141106

REACTIONS (2)
  - Alopecia [Recovering/Resolving]
  - Psychological trauma [Unknown]

NARRATIVE: CASE EVENT DATE: 20120701
